FAERS Safety Report 11418779 (Version 1)
Quarter: 2015Q3

REPORT INFORMATION
  Report Type: Spontaneous
  Country: CA (occurrence: None)
  Receive Date: 20150824
  Receipt Date: 20150824
  Transmission Date: 20151125
  Serious: Yes (Hospitalization)
  Sender: FDA-Public Use
  Company Number: IPC201508-000552

PATIENT
  Age: 77 Year
  Sex: Female

DRUGS (31)
  1. AMLODIPINE BESILATE (AMLODIPINE BESILATE) (AMLODIPINE BESILATE) [Suspect]
     Active Substance: AMLODIPINE BESYLATE
     Indication: HYPERTENSION
  2. DILTIAZEM HYDROCHLORIDE EXTENDED RELEASE [Suspect]
     Active Substance: DILTIAZEM HYDROCHLORIDE
     Indication: CORONARY ARTERY DISEASE
  3. DILTIAZEM HYDROCHLORIDE EXTENDED RELEASE [Suspect]
     Active Substance: DILTIAZEM HYDROCHLORIDE
     Indication: HYPERTENSION
  4. CYCLOBENZAPIRNE (CYCLOBENZAPRINE) (CYCLOBENZAPRINE) [Suspect]
     Active Substance: CYCLOBENZAPRINE
     Indication: FIBROMYALGIA
  5. ACETAMINOPHEN. [Concomitant]
     Active Substance: ACETAMINOPHEN
  6. GLUCOSAMINE [Concomitant]
     Active Substance: GLUCOSAMINE
  7. FUROSEMIDE (FUROSEMIDE) (FUROSEMIDE) [Suspect]
     Active Substance: FUROSEMIDE
     Indication: OEDEMA
  8. CARBAMAZEPINE (CARBAMAZEPINE (CARBAMAZEPINE) [Suspect]
     Active Substance: CARBAMAZEPINE
     Indication: PROPHYLAXIS
  9. OXAZEPAM (OXAZEPAM( (OXAZEPAM) [Suspect]
     Active Substance: OXAZEPAM
     Indication: INSOMNIA
  10. LACTULOSE. [Concomitant]
     Active Substance: LACTULOSE
  11. ACEBUTOLOL (ACEBUTOLOL) (ACEBUTOLOL) [Suspect]
     Active Substance: ACEBUTOLOL
     Indication: CORONARY ARTERY DISEASE
  12. ACEBUTOLOL (ACEBUTOLOL) (ACEBUTOLOL) [Suspect]
     Active Substance: ACEBUTOLOL
     Indication: HYPERTENSION
  13. LEVOTHYROXINE. [Concomitant]
     Active Substance: LEVOTHYROXINE
  14. GALANTAMINE ER [Suspect]
     Active Substance: GALANTAMINE
  15. NITROGLYCERIN (NITROGLYCERIN) (NITROGLYCERIN) [Suspect]
     Active Substance: NITROGLYCERIN
     Indication: ANGINA PECTORIS
     Dosage: 0.6 MG/HOUR AT BEDTIME
  16. AMLODIPINE BESILATE (AMLODIPINE BESILATE) (AMLODIPINE BESILATE) [Suspect]
     Active Substance: AMLODIPINE BESYLATE
     Indication: CORONARY ARTERY DISEASE
  17. QUINAPRIL [Suspect]
     Active Substance: QUINAPRIL\QUINAPRIL HYDROCHLORIDE
     Indication: CORONARY ARTERY DISEASE
  18. QUINAPRIL [Suspect]
     Active Substance: QUINAPRIL\QUINAPRIL HYDROCHLORIDE
     Indication: HYPERTENSION
  19. ROSUVASTATIN [Concomitant]
     Active Substance: ROSUVASTATIN
  20. SALBUTAMOL [Concomitant]
     Active Substance: ALBUTEROL
  21. TIOTROPIUM [Concomitant]
     Active Substance: TIOTROPIUM
  22. DIPYRIDAMOLE/ACETYLSALICYLIC ACID [Concomitant]
  23. BISACODYL. [Concomitant]
     Active Substance: BISACODYL
  24. LEVOFLOXACIN. [Concomitant]
     Active Substance: LEVOFLOXACIN
  25. ACEBUTOLOL (ACEBUTOLOL) (ACEBUTOLOL) [Suspect]
     Active Substance: ACEBUTOLOL
     Indication: ANGINA PECTORIS
  26. NITROGLYCERIN (NITROGLYCERIN) (NITROGLYCERIN) [Suspect]
     Active Substance: NITROGLYCERIN
     Indication: CORONARY ARTERY DISEASE
     Dosage: 0.6 MG/HOUR AT BEDTIME
  27. DILTIAZEM HYDROCHLORIDE EXTENDED RELEASE [Suspect]
     Active Substance: DILTIAZEM HYDROCHLORIDE
     Indication: ANGINA PECTORIS
  28. AMITRIPTYLINE (AMITRIPTYLINE) (AMITRIPTYLINE) [Suspect]
     Active Substance: AMITRIPTYLINE
     Indication: INSOMNIA
  29. MORPHINE (MORPHINE) (MORPHINE) [Suspect]
     Active Substance: MORPHINE
     Indication: FIBROMYALGIA
  30. MAGNESIUM HYDROXIDE. [Concomitant]
     Active Substance: MAGNESIUM HYDROXIDE
  31. OMEPRAZOLE. [Concomitant]
     Active Substance: OMEPRAZOLE

REACTIONS (14)
  - Toxicity to various agents [None]
  - Pain [None]
  - Blood calcium decreased [None]
  - Cognitive disorder [None]
  - Fall [None]
  - Creatinine renal clearance decreased [None]
  - Hypotension [None]
  - Depressed level of consciousness [None]
  - Sedation [None]
  - Balance disorder [None]
  - Dysstasia [None]
  - Orthostatic hypotension [None]
  - Constipation [None]
  - Mobility decreased [None]
